FAERS Safety Report 19515454 (Version 1)
Quarter: 2021Q3

REPORT INFORMATION
  Report Type: Report from Study
  Country: CN (occurrence: CN)
  Receive Date: 20210709
  Receipt Date: 20210709
  Transmission Date: 20211014
  Serious: Yes (Other)
  Sender: FDA-Public Use
  Company Number: CN-TAKEDA-2021TUS030313

PATIENT
  Age: 92 Year
  Sex: Female
  Weight: 51 kg

DRUGS (27)
  1. ESOMEPRAZOLE SODIUM. [Concomitant]
     Active Substance: ESOMEPRAZOLE SODIUM
     Dosage: 40 MILLIGRAM, QD
     Route: 042
     Dates: start: 20210324, end: 20210324
  2. REDUCED GLUTATHIONE SODIUM [Concomitant]
     Active Substance: GLUTATHIONE
     Indication: PROPHYLAXIS
     Dosage: 1.8 GRAM, QD
     Route: 042
     Dates: start: 20210310, end: 20210311
  3. REDUCED GLUTATHIONE SODIUM [Concomitant]
     Active Substance: GLUTATHIONE
     Dosage: 1.5 GRAM, QD
     Route: 042
     Dates: start: 20210317, end: 20210318
  4. MEGLUMINE ADENOSINE CYCLOPHOSPHATE [Concomitant]
     Active Substance: ADENOSINE CYCLIC PHOSPHATE MEGLUMINE
     Dosage: 120 MILLIGRAM, QD
     Route: 042
     Dates: start: 20210317, end: 20210318
  5. VITAMIN B6 [Concomitant]
     Active Substance: PYRIDOXINE HYDROCHLORIDE
     Indication: FLUID REPLACEMENT
     Dosage: 0.2 GRAM, QD
     Route: 042
     Dates: start: 20210328, end: 20210328
  6. CLOSTRIDIUM BUTYRICUM [Concomitant]
     Active Substance: CLOSTRIDIUM BUTYRICUM SPORES STRAIN M-55
     Indication: FUNCTIONAL GASTROINTESTINAL DISORDER
     Dosage: 40 MILLIGRAM, TID
     Route: 048
     Dates: start: 20210310, end: 20210311
  7. POTASSIUM CHLORIDE. [Concomitant]
     Active Substance: POTASSIUM CHLORIDE
     Indication: FLUID REPLACEMENT
     Dosage: 1 GRAM, BID
     Route: 042
     Dates: start: 20210328, end: 20210328
  8. DEXAMETHASONE. [Concomitant]
     Active Substance: DEXAMETHASONE
     Indication: PERIPHERAL VASCULAR DISORDER
     Dosage: UNK, QD
     Route: 048
     Dates: start: 20210324
  9. BICYCLOL [Concomitant]
     Active Substance: BICYCLOL
     Indication: PROPHYLAXIS
     Dosage: 50 MILLIGRAM, TID
     Route: 048
     Dates: start: 20210304
  10. SODIUM BICARBONATE. [Concomitant]
     Active Substance: SODIUM BICARBONATE
     Indication: ANTACID THERAPY
     Dosage: 1 GRAM, TID
     Route: 048
     Dates: start: 20210326
  11. OMEPRAZOLE. [Concomitant]
     Active Substance: OMEPRAZOLE
     Dosage: 20 MILLIGRAM, QD
     Route: 048
     Dates: start: 20210310, end: 20210311
  12. ESOMEPRAZOLE SODIUM. [Concomitant]
     Active Substance: ESOMEPRAZOLE SODIUM
     Indication: PROPHYLAXIS
     Dosage: 40 MILLIGRAM, QD
     Route: 042
     Dates: start: 20210310, end: 20210311
  13. MEGLUMINE ADENOSINE CYCLOPHOSPHATE [Concomitant]
     Active Substance: ADENOSINE CYCLIC PHOSPHATE MEGLUMINE
     Indication: PROPHYLAXIS
     Dosage: 120 MILLIGRAM, QD
     Route: 042
     Dates: start: 20210310, end: 20210311
  14. COMPOUND GLYCYRRHIZA MIXTURE ORAL SOLUTION ^CENTER^ [Concomitant]
     Indication: PRODUCTIVE COUGH
     Dosage: UNK
     Route: 048
     Dates: start: 20210228, end: 20210228
  15. DEXAMETHASONE ACETATE [Concomitant]
     Active Substance: DEXAMETHASONE ACETATE
     Indication: PLASMA CELL MYELOMA
     Dosage: 2.25 MILLIGRAM, QD
     Route: 048
     Dates: start: 20210304
  16. IXAZOMIB [Suspect]
     Active Substance: IXAZOMIB
     Dosage: 4 MILLIGRAM, 1/WEEK
     Route: 048
     Dates: start: 20210326
  17. ESOMEPRAZOLE SODIUM. [Concomitant]
     Active Substance: ESOMEPRAZOLE SODIUM
     Dosage: 40 MILLIGRAM, QD
     Route: 042
     Dates: start: 20210317, end: 20210318
  18. BORTEZOMIB. [Concomitant]
     Active Substance: BORTEZOMIB
     Indication: PERIPHERAL VASCULAR DISORDER
     Dosage: 1 MILLIGRAM, QD
     Route: 042
     Dates: start: 20210303, end: 20210303
  19. IXAZOMIB [Suspect]
     Active Substance: IXAZOMIB
     Indication: PLASMA CELL MYELOMA
     Dosage: UNK
     Route: 065
  20. ESOMEPRAZOLE SODIUM. [Concomitant]
     Active Substance: ESOMEPRAZOLE SODIUM
     Dosage: 40 MILLIGRAM, QD
     Route: 042
     Dates: start: 20210324, end: 20210329
  21. OMEPRAZOLE. [Concomitant]
     Active Substance: OMEPRAZOLE
     Indication: PROPHYLAXIS
     Dosage: 20 MILLIGRAM, QD
     Route: 048
     Dates: start: 20210304
  22. REDUCED GLUTATHIONE SODIUM [Concomitant]
     Active Substance: GLUTATHIONE
     Dosage: 0.6 GRAM, QD
     Route: 042
     Dates: start: 20210324, end: 20210324
  23. BICYCLOL [Concomitant]
     Active Substance: BICYCLOL
     Dosage: 50 MILLIGRAM, TID
     Route: 048
     Dates: start: 20210324
  24. MEGLUMINE ADENOSINE CYCLOPHOSPHATE [Concomitant]
     Active Substance: ADENOSINE CYCLIC PHOSPHATE MEGLUMINE
     Dosage: 120 MILLIGRAM, QD
     Route: 042
     Dates: start: 20210317, end: 20210317
  25. MECOBALAMINE [Concomitant]
     Active Substance: METHYLCOBALAMIN
     Indication: NERVOUS SYSTEM DISORDER
     Dosage: 0.5 MILLIGRAM, TID
     Route: 048
     Dates: start: 20210304
  26. CLOSTRIDIUM BUTYRICUM [Concomitant]
     Active Substance: CLOSTRIDIUM BUTYRICUM SPORES STRAIN M-55
     Dosage: 40 MILLIGRAM, TID
     Route: 048
     Dates: start: 20210324
  27. BORTEZOMIB. [Concomitant]
     Active Substance: BORTEZOMIB
     Dosage: 1 MILLIGRAM, QD
     Route: 042
     Dates: start: 20210317, end: 20210317

REACTIONS (4)
  - Diarrhoea [Not Recovered/Not Resolved]
  - Decreased appetite [Not Recovered/Not Resolved]
  - Large intestinal obstruction [Recovered/Resolved]
  - Gastrointestinal bacterial infection [Recovered/Resolved]

NARRATIVE: CASE EVENT DATE: 20210327
